FAERS Safety Report 8932400 (Version 2)
Quarter: 2013Q2

REPORT INFORMATION
  Report Type: Report from Study
  Country: FR (occurrence: FR)
  Receive Date: 20121128
  Receipt Date: 20130524
  Transmission Date: 20140414
  Serious: Yes (Death, Hospitalization)
  Sender: FDA-Public Use
  Company Number: PHHO2012FR016870

PATIENT
  Age: 66 Year
  Sex: Male

DRUGS (5)
  1. AFINITOR [Suspect]
     Indication: TRANSITIONAL CELL CARCINOMA
     Dosage: 10 MG, QD
     Route: 048
     Dates: start: 20120625, end: 20120706
  2. DAFALGAN [Concomitant]
  3. ABSTRAL [Concomitant]
  4. DUROGESIC [Concomitant]
     Dosage: 75 UG, PER 72 HOURS
  5. ECAZIDE [Concomitant]

REACTIONS (5)
  - Neoplasm progression [Fatal]
  - Malignant neoplasm progression [Fatal]
  - General physical health deterioration [Unknown]
  - Renal failure acute [Recovering/Resolving]
  - Anaemia [Recovering/Resolving]
